FAERS Safety Report 23777943 (Version 1)
Quarter: 2024Q2

REPORT INFORMATION
  Report Type: Spontaneous
  Country: US (occurrence: None)
  Receive Date: 20240423
  Receipt Date: 20240423
  Transmission Date: 20240716
  Serious: Yes (Disabling)
  Sender: FDA-Public Use
  Company Number: None

PATIENT
  Age: 48 Year
  Sex: Male
  Weight: 84 kg

DRUGS (2)
  1. PEMBROLIZUMAB [Suspect]
     Active Substance: PEMBROLIZUMAB
  2. OPDUALAG [Suspect]
     Active Substance: NIVOLUMAB\RELATLIMAB-RMBW

REACTIONS (5)
  - Hypothyroidism [None]
  - Muscular weakness [None]
  - Hypoaesthesia [None]
  - Intervertebral disc protrusion [None]
  - Guillain-Barre syndrome [None]

NARRATIVE: CASE EVENT DATE: 20240316
